FAERS Safety Report 7335736-6 (Version None)
Quarter: 2011Q1

REPORT INFORMATION
  Report Type: 
  Country: None (occurrence: None)
  Receive Date: 20110307
  Receipt Date: 20110228
  Transmission Date: 20110831
  Serious: Yes (Other)
  Sender: FDA-Public Use
  Company Number: B0703793A

PATIENT
  Sex: Female

DRUGS (1)
  1. REQUIP [Suspect]
     Route: 048

REACTIONS (2)
  - ABDOMINAL RIGIDITY [None]
  - BALANCE DISORDER [None]
